FAERS Safety Report 5652240-1 (Version None)
Quarter: 2008Q1

REPORT INFORMATION
  Report Type: 
  Country: None (occurrence: None)
  Receive Date: 20080305
  Receipt Date: 20080229
  Transmission Date: 20080703
  Serious: Yes (Hospitalization)
  Sender: FDA-Public Use
  Company Number: US-BOEHRINGER INGELHEIM GMBH, GERMANY-2008-BP-03112BP

PATIENT
  Sex: Female

DRUGS (5)
  1. CATAPRES-TTS-1 [Suspect]
     Indication: HOT FLUSH
     Route: 061
     Dates: start: 20071222
  2. PLAQUENIL [Concomitant]
  3. CYMBALTA [Concomitant]
  4. ACIPHEX [Concomitant]
  5. SYNTHROID [Concomitant]

REACTIONS (7)
  - CONSTIPATION [None]
  - DEHYDRATION [None]
  - DIARRHOEA [None]
  - DIZZINESS POSTURAL [None]
  - HYPOTENSION [None]
  - INSOMNIA [None]
  - SYNCOPE [None]
